FAERS Safety Report 15934421 (Version 5)
Quarter: 2022Q4

REPORT INFORMATION
  Report Type: Spontaneous
  Country: US (occurrence: None)
  Receive Date: 20190207
  Receipt Date: 20221227
  Transmission Date: 20230113
  Serious: Yes (Other)
  Sender: FDA-Public Use
  Company Number: 2018SF13721

PATIENT
  Age: 811 Month
  Sex: Female
  Weight: 95.3 kg

DRUGS (42)
  1. NEXIUM [Suspect]
     Active Substance: ESOMEPRAZOLE MAGNESIUM
     Indication: Gastrooesophageal reflux disease
     Route: 048
     Dates: start: 200705, end: 201706
  2. NEXIUM [Suspect]
     Active Substance: ESOMEPRAZOLE MAGNESIUM
     Indication: Gastrooesophageal reflux disease
     Route: 048
     Dates: start: 20070522, end: 20170612
  3. NEXIUM [Suspect]
     Active Substance: ESOMEPRAZOLE MAGNESIUM
     Indication: Gastrooesophageal reflux disease
     Route: 048
     Dates: start: 20070522
  4. NEXIUM [Suspect]
     Active Substance: ESOMEPRAZOLE MAGNESIUM
     Indication: Gastrooesophageal reflux disease
     Dosage: GENERIC
     Route: 065
     Dates: start: 20150313
  5. NEXIUM 24HR [Suspect]
     Active Substance: ESOMEPRAZOLE MAGNESIUM
     Indication: Gastrooesophageal reflux disease
     Route: 048
     Dates: start: 200705, end: 201706
  6. NEXIUM 24HR [Suspect]
     Active Substance: ESOMEPRAZOLE MAGNESIUM
     Indication: Gastrooesophageal reflux disease
     Route: 048
     Dates: start: 20160728
  7. NEXIUM 24HR [Suspect]
     Active Substance: ESOMEPRAZOLE MAGNESIUM
     Indication: Gastrooesophageal reflux disease
     Route: 048
  8. PRILOSEC [Suspect]
     Active Substance: OMEPRAZOLE MAGNESIUM
     Route: 048
  9. PRILOSEC OTC [Suspect]
     Active Substance: OMEPRAZOLE MAGNESIUM
     Route: 048
  10. DEXILANT [Suspect]
     Active Substance: DEXLANSOPRAZOLE
     Indication: Gastrooesophageal reflux disease
     Route: 065
     Dates: start: 200705, end: 201706
  11. DEXILANT [Suspect]
     Active Substance: DEXLANSOPRAZOLE
     Indication: Gastrooesophageal reflux disease
     Route: 065
     Dates: start: 20090624, end: 20090724
  12. DEXILANT [Suspect]
     Active Substance: DEXLANSOPRAZOLE
     Indication: Gastrooesophageal reflux disease
     Route: 065
     Dates: start: 20090624
  13. DEXILANT [Suspect]
     Active Substance: DEXLANSOPRAZOLE
     Indication: Gastrooesophageal reflux disease
     Route: 065
  14. DEXILANT [Suspect]
     Active Substance: DEXLANSOPRAZOLE
     Indication: Gastrooesophageal reflux disease
     Route: 065
     Dates: start: 20090624, end: 20091231
  15. PREVACID [Suspect]
     Active Substance: LANSOPRAZOLE
     Route: 065
  16. PREVACID 24 HR [Suspect]
     Active Substance: LANSOPRAZOLE
     Route: 065
  17. PANTOPRAZOLE [Suspect]
     Active Substance: PANTOPRAZOLE
     Indication: Gastrooesophageal reflux disease
     Route: 065
     Dates: start: 20170316, end: 20171231
  18. TRAMADOL [Concomitant]
     Active Substance: TRAMADOL
     Dates: start: 20070514
  19. FUROSEMIDE [Concomitant]
     Active Substance: FUROSEMIDE
     Dates: start: 20070517
  20. PHENTERMINE [Concomitant]
     Active Substance: PHENTERMINE
     Dates: start: 20070517
  21. TOPROL XL [Concomitant]
     Active Substance: METOPROLOL SUCCINATE
  22. LIPITOR [Concomitant]
     Active Substance: ATORVASTATIN CALCIUM
  23. CYMBALTA [Concomitant]
     Active Substance: DULOXETINE HYDROCHLORIDE
  24. PHENTERMINE [Concomitant]
     Active Substance: PHENTERMINE
  25. METHOCARBAMOL [Concomitant]
     Active Substance: METHOCARBAMOL
  26. AZITHROMYCIN [Concomitant]
     Active Substance: AZITHROMYCIN
  27. LEVAQUIN [Concomitant]
     Active Substance: LEVOFLOXACIN
  28. METOCLOPRAMIDE [Concomitant]
     Active Substance: METOCLOPRAMIDE
  29. AVELOX [Concomitant]
     Active Substance: MOXIFLOXACIN HYDROCHLORIDE
  30. PROMETHAZINE [Concomitant]
     Active Substance: PROMETHAZINE HYDROCHLORIDE
  31. HYDROCHLOROTHIAZIDE [Concomitant]
     Active Substance: HYDROCHLOROTHIAZIDE
  32. LABETALOL [Concomitant]
     Active Substance: LABETALOL\LABETALOL HYDROCHLORIDE
  33. LORAZEPAM [Concomitant]
     Active Substance: LORAZEPAM
  34. AZOR [Concomitant]
     Active Substance: AMLODIPINE BESYLATE\OLMESARTAN MEDOXOMIL
  35. FERROUS SULFATE [Concomitant]
     Active Substance: FERROUS SULFATE
  36. PREDNISONE [Concomitant]
     Active Substance: PREDNISONE
  37. LOVAZA [Concomitant]
     Active Substance: OMEGA-3-ACID ETHYL ESTERS
  38. BUPROPION [Concomitant]
     Active Substance: BUPROPION
  39. METOCLOPRAMIDE [Concomitant]
     Active Substance: METOCLOPRAMIDE
  40. CIPROFLOXACIN [Concomitant]
     Active Substance: CIPROFLOXACIN
  41. FENOFIBRATE [Concomitant]
     Active Substance: FENOFIBRATE
  42. ONDANSETRON [Concomitant]
     Active Substance: ONDANSETRON

REACTIONS (3)
  - Chronic kidney disease [Not Recovered/Not Resolved]
  - Acute kidney injury [Unknown]
  - Renal injury [Unknown]

NARRATIVE: CASE EVENT DATE: 20170301
